FAERS Safety Report 25267265 (Version 5)
Quarter: 2025Q4

REPORT INFORMATION
  Report Type: Report from Study
  Country: US (occurrence: US)
  Receive Date: 20250505
  Receipt Date: 20251224
  Transmission Date: 20260117
  Serious: No
  Sender: SANDOZ
  Company Number: US-SANDOZ-SDZ2025US021430

PATIENT
  Sex: Male

DRUGS (2)
  1. OMNITROPE [Suspect]
     Active Substance: SOMATROPIN
     Indication: Product used for unknown indication
     Dosage: 5.8 MG, QD, STRENGTH: 0.75 MG
  2. OMNITROPE [Suspect]
     Active Substance: SOMATROPIN

REACTIONS (7)
  - Blood glucose decreased [Unknown]
  - Paradoxical drug reaction [Unknown]
  - Poor quality product administered [Unknown]
  - Product physical issue [Unknown]
  - Product deposit [Unknown]
  - Therapy cessation [Unknown]
  - Product substitution [Unknown]

NARRATIVE: CASE EVENT DATE: 20250101
